FAERS Safety Report 5063937-9 (Version None)
Quarter: 2006Q3

REPORT INFORMATION
  Report Type: 
  Country: None (occurrence: None)
  Receive Date: 20060703
  Receipt Date: 20050926
  Transmission Date: 20061208
  Serious: No
  Sender: FDA-Public Use
  Company Number: 2005S1009537

PATIENT
  Age: 48 Year
  Sex: Male

DRUGS (11)
  1. CLOZAPINE [Suspect]
     Indication: SCHIZOPHRENIA
     Dosage: 200 MG;QD;PO
     Route: 048
     Dates: start: 20030927, end: 20051006
  2. RIBAVIRIN [Concomitant]
  3. RISPERIDONE [Concomitant]
  4. METFORMIN HYDROCHLORIDE [Concomitant]
  5. SETRALINE HCL [Concomitant]
  6. ROSIGLITAZONE MALEATE [Concomitant]
  7. INSULIN [Concomitant]
  8. ACETAMINOPHEN [Concomitant]
  9. VITAMINS NOS [Concomitant]
  10. PEGASYS [Concomitant]
  11. VALPROATE SODIUM [Concomitant]

REACTIONS (2)
  - GRANULOCYTOPENIA [None]
  - LEUKOPENIA [None]
